FAERS Safety Report 23934609 (Version 1)
Quarter: 2024Q2

REPORT INFORMATION
  Report Type: Spontaneous
  Country: US (occurrence: US)
  Receive Date: 20240603
  Receipt Date: 20240603
  Transmission Date: 20240716
  Serious: Yes (Hospitalization, Other)
  Sender: FDA-Public Use
  Company Number: US-009507513-2405USA008715

PATIENT
  Age: 76 Year
  Sex: Male

DRUGS (3)
  1. WELIREG [Suspect]
     Active Substance: BELZUTIFAN
     Dosage: 120 MG DAILY
     Route: 048
     Dates: start: 20240515, end: 20240521
  2. PREDNISONE [Concomitant]
     Active Substance: PREDNISONE
     Indication: Psoriatic arthropathy
     Dosage: DAILY
  3. STELARA [Concomitant]
     Active Substance: USTEKINUMAB
     Indication: Psoriatic arthropathy
     Dosage: EVERY 90 DAYS

REACTIONS (1)
  - Hypoxia [Recovering/Resolving]

NARRATIVE: CASE EVENT DATE: 20240521
